FAERS Safety Report 20494713 (Version 1)
Quarter: 2022Q1

REPORT INFORMATION
  Report Type: Spontaneous
  Country: BE (occurrence: BE)
  Receive Date: 20220221
  Receipt Date: 20220221
  Transmission Date: 20220424
  Serious: Yes (Hospitalization)
  Sender: FDA-Public Use
  Company Number: BE-LUPIN PHARMACEUTICALS INC.-2022-02211

PATIENT
  Age: 72 Year
  Sex: Female

DRUGS (5)
  1. VORICONAZOLE [Interacting]
     Active Substance: VORICONAZOLE
     Indication: Bronchopulmonary aspergillosis
     Dosage: 6 MILLIGRAM/KILOGRAM, BID CLASSIC LOADING DOSE
     Route: 065
  2. VORICONAZOLE [Interacting]
     Active Substance: VORICONAZOLE
     Dosage: 4 MILLIGRAM/KILOGRAM, BID (MAINTENANCE DOSE)
     Route: 065
  3. VORICONAZOLE [Interacting]
     Active Substance: VORICONAZOLE
     Dosage: 8 MILLIGRAM/KILOGRAM, BID DOSING WAS DOUBLED
     Route: 065
  4. FLUCLOXACILLIN [Interacting]
     Active Substance: FLUCLOXACILLIN
     Indication: Staphylococcal infection
     Dosage: 1 GRAM 6 TIMES (HIGH DOSE)
     Route: 065
  5. FLUCLOXACILLIN [Interacting]
     Active Substance: FLUCLOXACILLIN
     Dosage: 2 GRAM 6 TIMES (INCREASED DOSE)
     Route: 065

REACTIONS (2)
  - Drug level decreased [Recovering/Resolving]
  - Drug interaction [Unknown]
